FAERS Safety Report 8846251 (Version 1)
Quarter: 2012Q4

REPORT INFORMATION
  Report Type: 
  Country: FR (occurrence: FR)
  Receive Date: 20121017
  Receipt Date: 20121017
  Transmission Date: 20130627
  Serious: Yes (Hospitalization)
  Sender: FDA-Public Use
  Company Number: FR-BRISTOL-MYERS SQUIBB COMPANY-17027772

PATIENT
  Age: 79 Year

DRUGS (1)
  1. APROVEL [Suspect]

REACTIONS (1)
  - Stress cardiomyopathy [Unknown]
